FAERS Safety Report 15947350 (Version 2)
Quarter: 2019Q2

REPORT INFORMATION
  Report Type: Spontaneous
  Country: US (occurrence: US)
  Receive Date: 20190211
  Receipt Date: 20190430
  Transmission Date: 20190711
  Serious: No
  Sender: FDA-Public Use
  Company Number: US-PFIZER INC-2019062683

PATIENT
  Age: 76 Year
  Sex: Female
  Weight: 75 kg

DRUGS (1)
  1. IBRANCE [Suspect]
     Active Substance: PALBOCICLIB
     Indication: BREAST CANCER METASTATIC
     Dosage: 100 MG, CYCLIC [D 1-21 Q 28 DAYS]
     Route: 048
     Dates: start: 201809

REACTIONS (18)
  - Diarrhoea [Unknown]
  - Fatigue [Unknown]
  - Oral herpes [Unknown]
  - Rhinorrhoea [Unknown]
  - Dry eye [Unknown]
  - Lacrimation increased [Unknown]
  - Stomatitis [Unknown]
  - Nausea [Unknown]
  - Vulvovaginal dryness [Unknown]
  - Myalgia [Unknown]
  - Chills [Unknown]
  - Nasal dryness [Unknown]
  - Asthenia [Unknown]
  - Epistaxis [Unknown]
  - Pyrexia [Recovering/Resolving]
  - Full blood count decreased [Unknown]
  - White blood cell count decreased [Unknown]
  - Alopecia [Unknown]
